FAERS Safety Report 11458182 (Version 2)
Quarter: 2015Q4

REPORT INFORMATION
  Report Type: Spontaneous
  Country: JP (occurrence: JP)
  Receive Date: 20150904
  Receipt Date: 20151214
  Transmission Date: 20160304
  Serious: Yes (Hospitalization)
  Sender: FDA-Public Use
  Company Number: JP-JNJFOC-20150900211

PATIENT
  Age: 71 Year
  Sex: Male
  Weight: 77 kg

DRUGS (9)
  1. AMARYL [Concomitant]
     Active Substance: GLIMEPIRIDE
     Indication: TYPE 2 DIABETES MELLITUS
     Route: 048
     Dates: start: 20110316, end: 20140928
  2. METGLUCO [Concomitant]
     Active Substance: METFORMIN HYDROCHLORIDE
     Indication: TYPE 2 DIABETES MELLITUS
     Route: 048
     Dates: start: 20130823
  3. MAGNESIUM OXIDE. [Concomitant]
     Active Substance: MAGNESIUM OXIDE
     Route: 048
     Dates: start: 20110202
  4. DEPAS [Concomitant]
     Active Substance: ETIZOLAM
     Route: 048
     Dates: start: 20080416
  5. CRESTOR [Concomitant]
     Active Substance: ROSUVASTATIN CALCIUM
     Indication: BLADDER NEOPLASM SURGERY
     Route: 048
     Dates: start: 20091009, end: 20150424
  6. BAYASPIRIN [Concomitant]
     Active Substance: ASPIRIN
     Indication: BLADDER NEOPLASM SURGERY
     Route: 048
     Dates: start: 2006, end: 20150424
  7. HALCION [Concomitant]
     Active Substance: TRIAZOLAM
     Route: 048
     Dates: start: 20080416
  8. AMARYL [Concomitant]
     Active Substance: GLIMEPIRIDE
     Indication: TYPE 2 DIABETES MELLITUS
     Route: 048
     Dates: start: 20140929
  9. CANAGLU [Suspect]
     Active Substance: CANAGLIFLOZIN
     Indication: TYPE 2 DIABETES MELLITUS
     Route: 048
     Dates: start: 20140929, end: 20150424

REACTIONS (1)
  - Bladder neoplasm [Recovering/Resolving]

NARRATIVE: CASE EVENT DATE: 20150424
